FAERS Safety Report 16086131 (Version 1)
Quarter: 2019Q1

REPORT INFORMATION
  Report Type: Report from Study
  Country: GB (occurrence: GB)
  Receive Date: 20190318
  Receipt Date: 20190318
  Transmission Date: 20190418
  Serious: Yes (Death, Hospitalization)
  Sender: FDA-Public Use
  Company Number: GB-ROCHE-2274077

PATIENT
  Age: 70 Year
  Sex: Male
  Weight: 78 kg

DRUGS (5)
  1. OXALIPLATIN. [Suspect]
     Active Substance: OXALIPLATIN
     Indication: DIFFUSE LARGE B-CELL LYMPHOMA
     Dosage: DATE OF MOST RECENT ADMINISTRATION (100 MG) PRIOR TO ONSET OF SAE: 24/JAN/2019
     Route: 041
     Dates: start: 20181115
  2. FILGRASTIM [Suspect]
     Active Substance: FILGRASTIM
     Indication: DIFFUSE LARGE B-CELL LYMPHOMA
     Dosage: DATE OF MOST RECENT ADMINISTRATION (300 MCG) PRIOR TO ONSET OF SAE: 28/JAN/2019
     Route: 065
     Dates: start: 20181119
  3. RITUXIMAB. [Suspect]
     Active Substance: RITUXIMAB
     Indication: DIFFUSE LARGE B-CELL LYMPHOMA
     Dosage: DATE OF MOST RECENT ADMINISTRATION (1400 MG) PRIOR TO ONSET OF SAE: 24/JAN/2019
     Route: 058
     Dates: start: 20181115
  4. ATEZOLIZUMAB. [Suspect]
     Active Substance: ATEZOLIZUMAB
     Indication: DIFFUSE LARGE B-CELL LYMPHOMA
     Dosage: DATE OF MOST RECENT ADMINISTRATION (840 MG) PRIOR TO ONSET OF SAE: 24/JAN/2019
     Route: 041
     Dates: start: 20181129
  5. GEMCITABINE [Suspect]
     Active Substance: GEMCITABINE\GEMCITABINE HYDROCHLORIDE
     Indication: DIFFUSE LARGE B-CELL LYMPHOMA
     Dosage: DATE OF MOST RECENT ADMINISTRATION (1000 MG) PRIOR TO ONSET OF SAE: 24/JAN/2019
     Route: 041
     Dates: start: 20181115

REACTIONS (1)
  - Pneumonia [Fatal]

NARRATIVE: CASE EVENT DATE: 20190224
